FAERS Safety Report 10237327 (Version 1)
Quarter: 2014Q2

REPORT INFORMATION
  Report Type: Spontaneous
  Country: US (occurrence: US)
  Receive Date: 20140613
  Receipt Date: 20140613
  Transmission Date: 20141212
  Serious: No
  Sender: FDA-Public Use
  Company Number: US-009507513-1406USA004455

PATIENT
  Sex: Female

DRUGS (2)
  1. COZAAR [Suspect]
     Dosage: 1 DF, UNK
     Route: 048
  2. COZAAR [Suspect]
     Dosage: 2 DF, UNK

REACTIONS (4)
  - Feeling abnormal [Unknown]
  - Adverse event [Unknown]
  - Drug ineffective [Unknown]
  - Headache [Unknown]
